FAERS Safety Report 12611419 (Version 1)
Quarter: 2016Q3

REPORT INFORMATION
  Report Type: Report from Study
  Country: DE (occurrence: DE)
  Receive Date: 20160801
  Receipt Date: 20160801
  Transmission Date: 20161109
  Serious: Yes (Hospitalization)
  Sender: FDA-Public Use
  Company Number: DE-ELI_LILLY_AND_COMPANY-19165364

PATIENT
  Age: 59 Year
  Sex: Male
  Weight: 115 kg

DRUGS (5)
  1. CETUXIMAB [Suspect]
     Active Substance: CETUXIMAB
     Dosage: 250 MG/M2, WEEKLY (1/W)
     Route: 042
     Dates: start: 20130109, end: 20130717
  2. CETUXIMAB [Suspect]
     Active Substance: CETUXIMAB
     Indication: COLORECTAL CANCER METASTATIC
     Dosage: 400 MG/M2, SINGLE
     Route: 042
     Dates: start: 20130102, end: 20130102
  3. 5 FU [Concomitant]
     Active Substance: FLUOROURACIL
     Indication: COLORECTAL CANCER METASTATIC
     Dosage: 2300 MG/M2, EVERY 2 WEEKS
     Route: 040
     Dates: start: 20121221
  4. CALCIUM FOLINATE [Concomitant]
     Active Substance: LEUCOVORIN CALCIUM
     Indication: COLORECTAL CANCER METASTATIC
     Dosage: 400 MG/M2, EVERY 2 WEEKS
     Route: 042
     Dates: start: 20121221
  5. OXALIPLATIN. [Concomitant]
     Active Substance: OXALIPLATIN
     Indication: COLORECTAL CANCER METASTATIC
     Dosage: 85 MG/M2, EVERY 2 WEEKS
     Route: 042
     Dates: start: 20121221

REACTIONS (7)
  - Febrile neutropenia [Recovered/Resolved]
  - Vomiting [Unknown]
  - Angina pectoris [Unknown]
  - Nausea [Recovered/Resolved]
  - Lymphopenia [Recovered/Resolved]
  - Influenza [Unknown]
  - Hypertension [Unknown]

NARRATIVE: CASE EVENT DATE: 20130717
